FAERS Safety Report 5254147-0 (Version None)
Quarter: 2007Q1

REPORT INFORMATION
  Report Type: 
  Country: None (occurrence: None)
  Receive Date: 20070302
  Receipt Date: 20070223
  Transmission Date: 20070707
  Serious: Yes (Death)
  Sender: FDA-Public Use
  Company Number: JP-ROCHE-483425

PATIENT
  Age: 14 Year
  Sex: Female

DRUGS (1)
  1. TAMIFLU [Suspect]
     Dosage: TAKEN ONCE.
     Route: 048
     Dates: start: 20070216, end: 20070216

REACTIONS (2)
  - BRAIN CONTUSION [None]
  - COMPLETED SUICIDE [None]
